FAERS Safety Report 8240223-7 (Version None)
Quarter: 2012Q1

REPORT INFORMATION
  Report Type: 
  Country: None (occurrence: None)
  Receive Date: 20120328
  Receipt Date: 20120319
  Transmission Date: 20120608
  Serious: Yes (Death, Hospitalization)
  Sender: FDA-Public Use
  Company Number: DE-ELI_LILLY_AND_COMPANY-DE201203005044

PATIENT
  Age: 86 Year
  Sex: Female

DRUGS (4)
  1. VITAMIN D [Concomitant]
  2. ANALGESICS [Concomitant]
     Dosage: UNK, OTHER
  3. NALOXONE [Concomitant]
  4. FORTEO [Suspect]
     Indication: OSTEOPOROSIS
     Dosage: UNK, QD
     Route: 058
     Dates: start: 20110602

REACTIONS (2)
  - ASTHENIA [None]
  - DEATH [None]
